FAERS Safety Report 5915743-8 (Version None)
Quarter: 2008Q4

REPORT INFORMATION
  Report Type: 
  Country: None (occurrence: None)
  Receive Date: 20081010
  Receipt Date: 20081006
  Transmission Date: 20090506
  Serious: No
  Sender: FDA-Public Use
  Company Number: US-B.I. PHARMACEUTICALS,INC./RIDGEFIELD-2008-BP-15518BP

PATIENT
  Sex: Male

DRUGS (2)
  1. SPIRIVA [Suspect]
  2. CHANTIX [Concomitant]

REACTIONS (4)
  - ASTHENIA [None]
  - BACK PAIN [None]
  - DIZZINESS [None]
  - DYSPNOEA [None]
